FAERS Safety Report 25614572 (Version 5)
Quarter: 2025Q3

REPORT INFORMATION
  Report Type: Report from Study
  Country: GB (occurrence: GB)
  Receive Date: 20250729
  Receipt Date: 20250826
  Transmission Date: 20251021
  Serious: Yes (Other)
  Sender: TAKEDA
  Company Number: GB-TAKEDA-2025TUS067033

PATIENT
  Age: 65 Year
  Sex: Female

DRUGS (4)
  1. HUMAN IMMUNOGLOBULIN G [Suspect]
     Active Substance: HUMAN IMMUNOGLOBULIN G
     Indication: Primary immunodeficiency syndrome
  2. HUMAN IMMUNOGLOBULIN G [Suspect]
     Active Substance: HUMAN IMMUNOGLOBULIN G
     Dosage: 10 GRAM, 1/WEEK
  3. HUMAN IMMUNOGLOBULIN G [Suspect]
     Active Substance: HUMAN IMMUNOGLOBULIN G
  4. HUMAN IMMUNOGLOBULIN G [Suspect]
     Active Substance: HUMAN IMMUNOGLOBULIN G

REACTIONS (13)
  - Type 2 diabetes mellitus [Unknown]
  - Lower respiratory tract infection [Recovering/Resolving]
  - Illness [Unknown]
  - Headache [Recovered/Resolved]
  - Fatigue [Recovered/Resolved]
  - Vomiting [Recovered/Resolved]
  - Obesity [Unknown]
  - Blood pressure increased [Unknown]
  - Infusion site pruritus [Unknown]
  - Infusion site discomfort [Unknown]
  - Infusion site mass [Unknown]
  - Nausea [Recovered/Resolved]
  - Infusion site erythema [Recovering/Resolving]

NARRATIVE: CASE EVENT DATE: 20250801
